FAERS Safety Report 18971164 (Version 1)
Quarter: 2021Q1

REPORT INFORMATION
  Report Type: Spontaneous
  Country: JP (occurrence: JP)
  Receive Date: 20210305
  Receipt Date: 20210305
  Transmission Date: 20210420
  Serious: Yes (Other)
  Sender: FDA-Public Use
  Company Number: JP-LUPIN PHARMACEUTICALS INC.-2021-02781

PATIENT
  Age: 9 Month
  Sex: Male
  Weight: 13.7 kg

DRUGS (6)
  1. LEVETIRACETAM. [Suspect]
     Active Substance: LEVETIRACETAM
     Indication: BREATH HOLDING
     Dosage: 10 MILLIGRAM/KILOGRAM, BID
     Route: 065
  2. THEOPHYLLINE [Concomitant]
     Active Substance: THEOPHYLLINE ANHYDROUS
     Indication: BREATH HOLDING
     Dosage: 2 MILLIGRAM/KILOGRAM, BID, SUSTAINED?RELEASE DRY SYRUP
     Route: 065
  3. THEOPHYLLINE [Concomitant]
     Active Substance: THEOPHYLLINE ANHYDROUS
     Dosage: 2.7 MILLIGRAM/KILOGRAM, BID
     Route: 065
  4. YOKUKANSAN [Suspect]
     Active Substance: HERBALS
     Indication: BREATH HOLDING
     Dosage: UNK
     Route: 065
  5. IRON [Suspect]
     Active Substance: IRON
     Indication: BREATH HOLDING
     Dosage: UNK
     Route: 065
  6. IRON [Suspect]
     Active Substance: IRON
     Indication: IRON DEFICIENCY ANAEMIA

REACTIONS (1)
  - Drug ineffective [Unknown]
